FAERS Safety Report 26122908 (Version 2)
Quarter: 2025Q4

REPORT INFORMATION
  Report Type: Spontaneous
  Country: US (occurrence: US)
  Receive Date: 20251204
  Receipt Date: 20251217
  Transmission Date: 20260117
  Serious: Yes (Other)
  Sender: BIOMARIN
  Company Number: US-SA-2025SA353031

PATIENT
  Age: 26 Year
  Sex: Male
  Weight: 34.5 kg

DRUGS (1)
  1. LARONIDASE [Suspect]
     Active Substance: LARONIDASE
     Indication: Mucopolysaccharidosis I
     Dosage: 20.3 MG, QW
     Dates: start: 20090106

REACTIONS (2)
  - Bone marrow transplant [Not Recovered/Not Resolved]
  - Urinary tract disorder [Not Recovered/Not Resolved]
